FAERS Safety Report 5586456-X (Version None)
Quarter: 2008Q1

REPORT INFORMATION
  Report Type: 
  Country: None (occurrence: None)
  Receive Date: 20080110
  Receipt Date: 20080109
  Transmission Date: 20080703
  Serious: Yes (Death, Life-Threatening, Other)
  Sender: FDA-Public Use
  Company Number: KR-BRISTOL-MYERS SQUIBB COMPANY-14035679

PATIENT
  Age: 70 Year
  Sex: Female
  Weight: 59 kg

DRUGS (11)
  1. CISPLATIN [Suspect]
     Indication: NON-SMALL CELL LUNG CANCER
     Route: 042
     Dates: start: 20070920
  2. ALIMTA [Suspect]
     Indication: NON-SMALL CELL LUNG CANCER
     Route: 042
     Dates: start: 20070920
  3. FOLIC ACID [Concomitant]
     Dates: start: 20070912
  4. VITAMIN B-12 [Concomitant]
     Dates: start: 20070912
  5. DEXAMETHASONE TAB [Concomitant]
     Dates: start: 20070919, end: 20070921
  6. BENPROPERINE [Concomitant]
     Indication: ANTITUSSIVE THERAPY
     Dates: start: 20070907
  7. ACETYLCYSTEINE [Concomitant]
     Dates: start: 20070907
  8. REBAMIPIDE [Concomitant]
     Indication: DYSPEPSIA
     Dates: start: 20070913
  9. ITOPRIDE HCL [Concomitant]
     Indication: DYSPEPSIA
     Dates: start: 20070920
  10. CODEINE PHOSPHATE [Concomitant]
     Indication: ANTITUSSIVE THERAPY
     Dates: start: 20070913
  11. OXYCONTIN [Concomitant]
     Indication: ANALGESIC THERAPY
     Dates: start: 20070914

REACTIONS (4)
  - APNOEA [None]
  - COMA [None]
  - DEATH [None]
  - DYSPNOEA [None]
